FAERS Safety Report 6299267-7 (Version None)
Quarter: 2009Q3

REPORT INFORMATION
  Report Type: 
  Country: None (occurrence: None)
  Receive Date: 20090806
  Receipt Date: 20090803
  Transmission Date: 20100115
  Serious: Yes (Other)
  Sender: FDA-Public Use
  Company Number: IL-ROXANE LABORATORIES, INC.-2009-RO-00777RO

PATIENT
  Age: 28 Year
  Sex: Male

DRUGS (6)
  1. PREDNISONE [Suspect]
     Indication: HODGKIN'S DISEASE
     Dosage: 100 MG
     Route: 048
  2. PEGFILGRASTIM [Suspect]
     Indication: HODGKIN'S DISEASE
     Route: 058
  3. ENOXAPARIN SODIUM [Suspect]
     Indication: HODGKIN'S DISEASE
  4. BEACOPP CHEMOTHERAPY [Suspect]
     Indication: HODGKIN'S DISEASE
  5. RADIOTHERAPY [Concomitant]
     Indication: HODGKIN'S DISEASE
  6. ABVD CHEMOTHERAPY [Concomitant]
     Indication: HODGKIN'S DISEASE

REACTIONS (3)
  - OSTEONECROSIS [None]
  - PAIN [None]
  - WHITE BLOOD CELL COUNT INCREASED [None]
